FAERS Safety Report 8614571-2 (Version None)
Quarter: 2012Q3

REPORT INFORMATION
  Report Type: 
  Country: None (occurrence: None)
  Receive Date: 20120823
  Receipt Date: 20120809
  Transmission Date: 20120928
  Serious: Yes (Death, Hospitalization)
  Sender: FDA-Public Use
  Company Number: PL-MYLANLABS-2012S1014702

PATIENT
  Age: 17 Year
  Sex: Male

DRUGS (11)
  1. CEFEPIME [Suspect]
     Route: 065
  2. MEROPENEM [Suspect]
     Route: 065
  3. VANCOCIN HYDROCHLORIDE [Suspect]
     Route: 065
  4. FLUCONAZOLE [Concomitant]
  5. IFOSFAMIDE [Suspect]
     Indication: EWING'S SARCOMA METASTATIC
     Route: 065
  6. NETROMYCIN [Suspect]
     Route: 065
  7. DOXORUBICIN HYDROCHLORIDE [Suspect]
     Indication: EWING'S SARCOMA
     Route: 065
  8. ETOPOSIDE [Suspect]
     Indication: EWING'S SARCOMA METASTATIC
     Route: 065
  9. METRONIDAZOLE [Suspect]
  10. VINCRISTINE [Suspect]
     Indication: EWING'S SARCOMA METASTATIC
     Route: 065
  11. CASPOFUNGIN ACETATE [Concomitant]

REACTIONS (8)
  - SEPTIC SHOCK [None]
  - PANCYTOPENIA [None]
  - CLOSTRIDIAL INFECTION [None]
  - PYREXIA [None]
  - RENAL FAILURE [None]
  - RHABDOMYOLYSIS [None]
  - DISSEMINATED INTRAVASCULAR COAGULATION [None]
  - NEUTROPENIA [None]
